FAERS Safety Report 15673145 (Version 2)
Quarter: 2020Q3

REPORT INFORMATION
  Report Type: Spontaneous
  Country: US (occurrence: US)
  Receive Date: 20181129
  Receipt Date: 20200917
  Transmission Date: 20201102
  Serious: No
  Sender: FDA-Public Use
  Company Number: US-PFIZER INC-2018482579

PATIENT
  Sex: Female
  Weight: 61 kg

DRUGS (11)
  1. DOCETAXEL. [Suspect]
     Active Substance: DOCETAXEL
     Dosage: UNK
     Dates: start: 20130827, end: 20131121
  2. NORVASC [Concomitant]
     Active Substance: AMLODIPINE BESYLATE
     Dosage: UNK
  3. NEOSAR [Concomitant]
     Active Substance: CYCLOPHOSPHAMIDE
     Indication: CHEMOTHERAPY
     Dosage: UNK
  4. TRAMADOL. [Concomitant]
     Active Substance: TRAMADOL
     Dosage: UNK
  5. DOCETAXEL. [Suspect]
     Active Substance: DOCETAXEL
     Indication: BREAST CANCER FEMALE
     Dosage: 117 MG, CYCLIC (EVERY THREE WEEKS, FOR A TOTAL OF SIX CYCLES)
     Dates: start: 20130827, end: 20131211
  6. MOTRIN [Concomitant]
     Active Substance: IBUPROFEN
     Dosage: 800 MG
  7. ATORVASTATIN [Concomitant]
     Active Substance: ATORVASTATIN
     Dosage: UNK
  8. DOCETAXEL ACCORD [Suspect]
     Active Substance: DOCETAXEL
     Indication: BREAST CANCER FEMALE
     Dosage: 117 MG, CYCLIC (EVERY THREE WEEKS, FOR A TOTAL OF SIX CYCLES)
     Dates: start: 20130827, end: 20131211
  9. ETODOLAC. [Concomitant]
     Active Substance: ETODOLAC
     Dosage: UNK
  10. BUPROPION XL [Concomitant]
     Active Substance: BUPROPION
     Dosage: UNK
  11. OMEPRAZOLE. [Concomitant]
     Active Substance: OMEPRAZOLE
     Dosage: UNK

REACTIONS (5)
  - Hair disorder [Unknown]
  - Hair colour changes [Unknown]
  - Hair texture abnormal [Unknown]
  - Madarosis [Not Recovered/Not Resolved]
  - Alopecia [Not Recovered/Not Resolved]
